FAERS Safety Report 11862847 (Version 3)
Quarter: 2016Q3

REPORT INFORMATION
  Report Type: Report from Study
  Country: US (occurrence: US)
  Receive Date: 20151223
  Receipt Date: 20160719
  Transmission Date: 20161109
  Serious: Yes (Hospitalization)
  Sender: FDA-Public Use
  Company Number: US-BEH-2015056902

PATIENT
  Age: 20 Year
  Sex: Female
  Weight: 79.83 kg

DRUGS (3)
  1. BERINERT [Suspect]
     Active Substance: HUMAN C1-ESTERASE INHIBITOR
     Indication: LARYNGEAL DISORDER
     Dosage: THE PATIENT HAD 2 DOSES WITH IN 6 HOURS
     Route: 042
     Dates: start: 20151212
  2. BERINERT [Suspect]
     Active Substance: HUMAN C1-ESTERASE INHIBITOR
     Indication: ANGIOEDEMA
     Dosage: 1600 IU, PRN
     Route: 042
     Dates: start: 20151110
  3. BERINERT [Suspect]
     Active Substance: HUMAN C1-ESTERASE INHIBITOR
     Indication: ANGIOEDEMA

REACTIONS (2)
  - Off label use [Unknown]
  - Laryngeal disorder [Recovered/Resolved]
